FAERS Safety Report 7725540-9 (Version None)
Quarter: 2011Q3

REPORT INFORMATION
  Report Type: 
  Country: None (occurrence: None)
  Receive Date: 20110902
  Receipt Date: 20110829
  Transmission Date: 20111222
  Serious: Yes (Life-Threatening, Other)
  Sender: FDA-Public Use
  Company Number: CA-ROXANE LABORATORIES, INC.-2011-DE-04873GD

PATIENT
  Age: 10 Year
  Sex: Female

DRUGS (6)
  1. MIDAZOLAM HCL [Suspect]
     Indication: INDUCTION OF ANAESTHESIA
  2. EPINEPHRINE [Suspect]
  3. DOPAMINE HCL [Suspect]
  4. HYDROMORPHONE HCL [Suspect]
     Indication: INDUCTION OF ANAESTHESIA
  5. KETAMINE HCL [Suspect]
     Indication: INDUCTION OF ANAESTHESIA
  6. MORPHINE [Suspect]
     Indication: INDUCTION OF ANAESTHESIA

REACTIONS (3)
  - HYPOTENSION [None]
  - BRADYCARDIA [None]
  - CARDIAC ARREST [None]
